FAERS Safety Report 15406079 (Version 2)
Quarter: 2018Q4

REPORT INFORMATION
  Report Type: Spontaneous
  Country: US (occurrence: US)
  Receive Date: 20180920
  Receipt Date: 20181026
  Transmission Date: 20190204
  Serious: Yes (Hospitalization)
  Sender: FDA-Public Use
  Company Number: US-PFIZER INC-2018380759

PATIENT
  Age: 64 Year
  Sex: Female
  Weight: 46 kg

DRUGS (7)
  1. ADVIL [Suspect]
     Active Substance: IBUPROFEN
     Indication: PAIN
     Dosage: 200 MG, 2X/DAY
     Route: 048
     Dates: start: 20180909
  2. ADVIL [Suspect]
     Active Substance: IBUPROFEN
     Dosage: UNK, 2X/DAY
     Dates: start: 20180911, end: 20180911
  3. METFORMIN [Concomitant]
     Active Substance: METFORMIN HYDROCHLORIDE
     Indication: DIABETES MELLITUS
     Dosage: 500 MG, UNK
     Dates: start: 2012
  4. ADVIL [Suspect]
     Active Substance: IBUPROFEN
     Dosage: UNK, 1X/DAY
     Dates: start: 20180909
  5. ADVIL [Suspect]
     Active Substance: IBUPROFEN
     Dosage: UNK, 2X/DAY
     Dates: start: 20180912, end: 20180912
  6. ADVIL [Suspect]
     Active Substance: IBUPROFEN
     Dosage: UNK, 2X/DAY
     Dates: start: 20180910, end: 20180910
  7. ADVIL [Suspect]
     Active Substance: IBUPROFEN
     Dosage: UNK, 1X/DAY
     Dates: start: 20180913, end: 20180913

REACTIONS (3)
  - Drug ineffective [Recovered/Resolved]
  - Expired product administered [Recovered/Resolved]
  - Blood glucose increased [Recovered/Resolved]

NARRATIVE: CASE EVENT DATE: 20180909
